FAERS Safety Report 9938617 (Version 5)
Quarter: 2014Q3

REPORT INFORMATION
  Report Type: Report from Study
  Country: US (occurrence: US)
  Receive Date: 20140303
  Receipt Date: 20140703
  Transmission Date: 20150326
  Serious: Yes (Hospitalization)
  Sender: FDA-Public Use
  Company Number: US-JNJFOC-20140216641

PATIENT
  Age: 9 Year
  Sex: Male
  Weight: 22.4 kg

DRUGS (10)
  1. REMICADE [Suspect]
     Active Substance: INFLIXIMAB
     Indication: CROHN^S DISEASE
     Route: 042
     Dates: start: 20130901
  2. ACETAMINOPHEN. [Concomitant]
     Active Substance: ACETAMINOPHEN
     Route: 065
  3. VITAMIN D3 [Concomitant]
     Active Substance: CHOLECALCIFEROL
     Route: 065
  4. MULTIVITAMINS [Concomitant]
     Active Substance: VITAMINS
     Route: 048
  5. MUPIROCIN. [Concomitant]
     Active Substance: MUPIROCIN
     Route: 065
  6. HYDROCORTISONE. [Concomitant]
     Active Substance: HYDROCORTISONE
     Route: 065
  7. ERYTHROMYCIN. [Concomitant]
     Active Substance: ERYTHROMYCIN
     Route: 065
  8. REMICADE [Suspect]
     Active Substance: INFLIXIMAB
     Indication: CROHN^S DISEASE
     Route: 042
     Dates: start: 20140201
  9. DIPHENHYDRAMINE [Concomitant]
     Active Substance: DIPHENHYDRAMINE
     Route: 065
  10. TRIAMCINOLONE ACETONIDE. [Concomitant]
     Active Substance: TRIAMCINOLONE ACETONIDE
     Route: 065

REACTIONS (1)
  - Intestinal stenosis [Recovered/Resolved]

NARRATIVE: CASE EVENT DATE: 20140216
